FAERS Safety Report 6087018-0 (Version None)
Quarter: 2009Q1

REPORT INFORMATION
  Report Type: 
  Country: None (occurrence: None)
  Receive Date: 20090223
  Receipt Date: 20090212
  Transmission Date: 20090719
  Serious: Yes (Hospitalization)
  Sender: FDA-Public Use
  Company Number: PHHY2009BE05375

PATIENT
  Sex: Female

DRUGS (6)
  1. RASILEZ [Suspect]
     Indication: HYPERTENSION
     Route: 048
  2. VASEXTEN [Concomitant]
  3. CORUNO [Concomitant]
  4. BISOPROLOL [Concomitant]
  5. FUROSEMIDE [Concomitant]
  6. MOXONIDINE [Concomitant]

REACTIONS (3)
  - BLOOD AMYLASE INCREASED [None]
  - DYSPNOEA [None]
  - PANCREATITIS [None]
